FAERS Safety Report 16094938 (Version 12)
Quarter: 2020Q1

REPORT INFORMATION
  Report Type: Spontaneous
  Country: US (occurrence: US)
  Receive Date: 20190320
  Receipt Date: 20200218
  Transmission Date: 20200409
  Serious: Yes (Other)
  Sender: FDA-Public Use
  Company Number: US-PFIZER INC-2019098355

PATIENT
  Age: 77 Year
  Sex: Female
  Weight: 54 kg

DRUGS (4)
  1. LYRICA [Suspect]
     Active Substance: PREGABALIN
     Indication: POST LAMINECTOMY SYNDROME
     Dosage: 75 MG, TWICE A DAY
     Route: 048
     Dates: start: 2019, end: 2019
  2. LYRICA [Suspect]
     Active Substance: PREGABALIN
     Dosage: 75 MG, 1X/DAY
     Route: 048
  3. DULOXETINE DR [Concomitant]
     Active Substance: DULOXETINE
     Indication: BACK PAIN
     Dosage: 20 MG, 1X/DAY
     Route: 048
     Dates: start: 20190214
  4. LYRICA [Suspect]
     Active Substance: PREGABALIN
     Indication: ARACHNOIDITIS
     Dosage: 50 MG, TWICE A DAY
     Route: 048
     Dates: start: 201810

REACTIONS (4)
  - Cataract [Unknown]
  - Intentional product use issue [Unknown]
  - Pain [Unknown]
  - Weight increased [Recovered/Resolved]

NARRATIVE: CASE EVENT DATE: 2019
